FAERS Safety Report 21531362 (Version 1)
Quarter: 2022Q4

REPORT INFORMATION
  Report Type: Spontaneous
  Country: DE (occurrence: DE)
  Receive Date: 20221031
  Receipt Date: 20221031
  Transmission Date: 20230112
  Serious: Yes (Death, Hospitalization, Other)
  Sender: FDA-Public Use
  Company Number: DE-GILEAD-2022-0600660

PATIENT
  Age: 41 Year
  Sex: Female
  Weight: 51 kg

DRUGS (1)
  1. TRODELVY [Suspect]
     Active Substance: SACITUZUMAB GOVITECAN-HZIY
     Indication: Product used for unknown indication
     Dosage: UNK
     Route: 065
     Dates: start: 20220801, end: 20220922

REACTIONS (3)
  - Peritonitis [Fatal]
  - Alveolitis [Fatal]
  - Triple negative breast cancer [Unknown]

NARRATIVE: CASE EVENT DATE: 20221003
